FAERS Safety Report 21324141 (Version 1)
Quarter: 2022Q3

REPORT INFORMATION
  Report Type: Spontaneous
  Country: US (occurrence: US)
  Receive Date: 20220912
  Receipt Date: 20220912
  Transmission Date: 20221027
  Serious: No
  Sender: FDA-Public Use
  Company Number: US-PFIZER INC-202201150958

PATIENT
  Age: 78 Year
  Sex: Female
  Weight: 71.67 kg

DRUGS (1)
  1. IBRANCE [Suspect]
     Active Substance: PALBOCICLIB
     Indication: Breast cancer metastatic
     Dosage: 125 MG, CYCLIC (ONCE A DAY FOR 21 DAYS AND STOP FOR 7 OR 8 DAYS)

REACTIONS (2)
  - Pigmentation disorder [Unknown]
  - Stomatitis [Unknown]
